FAERS Safety Report 8923584 (Version 1)
Quarter: 2012Q4

REPORT INFORMATION
  Report Type: 
  Country: IE (occurrence: IE)
  Receive Date: 20121123
  Receipt Date: 20121123
  Transmission Date: 20130627
  Serious: Yes (Hospitalization, Other)
  Sender: FDA-Public Use
  Company Number: PHHO2012IE016474

PATIENT
  Age: 81 Year
  Sex: Female

DRUGS (5)
  1. BISOPROLOL [Suspect]
     Indication: HYPERTENSION
     Dosage: 5 mg, QD
  2. CGS 20267 [Suspect]
     Indication: BREAST CANCER
     Dosage: 2.5 mg, QD
     Dates: start: 20071224, end: 20121112
  3. ATORVASTATIN [Concomitant]
     Indication: BLOOD CHOLESTEROL INCREASED
     Dosage: 40 mg, QD
  4. ASPIRIN [Concomitant]
     Indication: ATRIAL FIBRILLATION
     Dosage: 75 mg, QD
  5. WARFARIN [Concomitant]
     Indication: ATRIAL FIBRILLATION
     Dosage: UNK, PRN

REACTIONS (2)
  - Presyncope [Not Recovered/Not Resolved]
  - Vomiting [Recovered/Resolved]
